FAERS Safety Report 25702442 (Version 1)
Quarter: 2025Q3

REPORT INFORMATION
  Report Type: Spontaneous
  Country: EU (occurrence: EU)
  Receive Date: 20250819
  Receipt Date: 20250819
  Transmission Date: 20251021
  Serious: Yes (Other)
  Sender: INSUD PHARMA
  Company Number: None

PATIENT
  Age: 30 Year
  Sex: Female
  Weight: 70 kg

DRUGS (2)
  1. DROSPIRENONE [Suspect]
     Active Substance: DROSPIRENONE
     Indication: Endometriosis
     Route: 048
     Dates: start: 20250318, end: 20250606
  2. DROSPIRENONE [Suspect]
     Active Substance: DROSPIRENONE
     Indication: Adenomyosis

REACTIONS (3)
  - Mixed liver injury [Recovering/Resolving]
  - Yellow skin [Unknown]
  - Ocular icterus [Unknown]

NARRATIVE: CASE EVENT DATE: 20250523
